FAERS Safety Report 6261670-9 (Version None)
Quarter: 2009Q3

REPORT INFORMATION
  Report Type: 
  Country: None (occurrence: None)
  Receive Date: 20090707
  Receipt Date: 20090707
  Transmission Date: 20100115
  Serious: No
  Sender: FDA-Public Use
  Company Number: None

PATIENT
  Age: 39 Year
  Sex: Male

DRUGS (2)
  1. KETOROLAC TROMETHAMINE [Suspect]
     Indication: BACK PAIN
     Dosage: 60 MG ONCE IM
     Route: 030
     Dates: start: 20090503, end: 20090503
  2. KETOROLAC TROMETHAMINE [Suspect]
     Indication: TRANSIENT ISCHAEMIC ATTACK
     Dosage: 60 MG ONCE IM
     Route: 030
     Dates: start: 20090503, end: 20090503

REACTIONS (1)
  - ANAPHYLACTIC REACTION [None]
